FAERS Safety Report 25976568 (Version 1)
Quarter: 2025Q4

REPORT INFORMATION
  Report Type: Spontaneous
  Country: KR (occurrence: KR)
  Receive Date: 20251029
  Receipt Date: 20251029
  Transmission Date: 20260118
  Serious: Yes (Other)
  Sender: NOVARTIS
  Company Number: KR-002147023-NVSC2025KR165269

PATIENT
  Age: 75 Year
  Sex: Male

DRUGS (13)
  1. LUTATHERA [Suspect]
     Active Substance: LUTETIUM OXODOTREOTIDE LU-177
     Indication: Neuroendocrine tumour of the rectum
     Dosage: 200 MCI
     Route: 042
     Dates: start: 20240105, end: 20240105
  2. LUTATHERA [Suspect]
     Active Substance: LUTETIUM OXODOTREOTIDE LU-177
     Indication: Metastases to lymph nodes
     Dosage: 200 MCI
     Route: 042
     Dates: start: 20240308, end: 20240308
  3. LUTATHERA [Suspect]
     Active Substance: LUTETIUM OXODOTREOTIDE LU-177
     Indication: Metastases to pancreas
     Dosage: 200 MCI
     Route: 042
     Dates: start: 20240503, end: 20240503
  4. LUTATHERA [Suspect]
     Active Substance: LUTETIUM OXODOTREOTIDE LU-177
     Indication: Metastases to liver
     Dosage: 200 MCI
     Route: 042
     Dates: start: 20240712, end: 20240712
  5. LUTATHERA [Suspect]
     Active Substance: LUTETIUM OXODOTREOTIDE LU-177
     Indication: Metastases to bone
  6. ARGININE\LYSINE [Suspect]
     Active Substance: ARGININE\LYSINE
     Indication: Neuroendocrine tumour of the rectum
     Dosage: UNK
     Route: 042
     Dates: start: 20240105, end: 20240105
  7. ARGININE\LYSINE [Suspect]
     Active Substance: ARGININE\LYSINE
     Indication: Metastases to lymph nodes
     Dosage: UNK
     Route: 042
     Dates: start: 20240308, end: 20240308
  8. ARGININE\LYSINE [Suspect]
     Active Substance: ARGININE\LYSINE
     Indication: Metastases to pancreas
     Dosage: UNK
     Route: 042
     Dates: start: 20240503, end: 20240503
  9. ARGININE\LYSINE [Suspect]
     Active Substance: ARGININE\LYSINE
     Indication: Metastases to liver
     Dosage: UNK
     Route: 042
     Dates: start: 20240712, end: 20240712
  10. ARGININE\LYSINE [Suspect]
     Active Substance: ARGININE\LYSINE
     Indication: Metastases to bone
  11. DEXAMETHASONE [Concomitant]
     Active Substance: DEXAMETHASONE
     Indication: Product used for unknown indication
     Dosage: 12 MG
     Route: 042
     Dates: start: 20240105, end: 20240105
  12. SODIUM CHLORIDE [Concomitant]
     Active Substance: SODIUM CHLORIDE
     Indication: Product used for unknown indication
     Dosage: 100 ML (1BAG OF 100ML)
     Route: 042
     Dates: start: 20240105, end: 20240105
  13. Solondo [Concomitant]
     Indication: Product used for unknown indication
     Dosage: 40 MG, QD (Y FOR 1  WEEK STARTING THE NEXT DAY)
     Route: 048

REACTIONS (3)
  - Diabetes mellitus [Unknown]
  - Lumbar spinal stenosis [Unknown]
  - Back pain [Unknown]
